FAERS Safety Report 10885659 (Version 3)
Quarter: 2015Q2

REPORT INFORMATION
  Report Type: Spontaneous
  Country: JP (occurrence: JP)
  Receive Date: 20150304
  Receipt Date: 20150402
  Transmission Date: 20150821
  Serious: Yes (Death)
  Sender: FDA-Public Use
  Company Number: PHJP2015JP002626

PATIENT
  Age: 75 Year
  Sex: Female

DRUGS (1)
  1. VOLTAREN SUP [Suspect]
     Active Substance: DICLOFENAC SODIUM
     Indication: PYREXIA
     Dosage: 50 MG, QD
     Route: 054

REACTIONS (3)
  - Shock [Fatal]
  - Product use issue [Unknown]
  - Blood pressure decreased [Fatal]
